FAERS Safety Report 8079238-0 (Version None)
Quarter: 2012Q1

REPORT INFORMATION
  Report Type: 
  Country: None (occurrence: None)
  Receive Date: 20120128
  Receipt Date: 20110816
  Transmission Date: 20120608
  Serious: No
  Sender: FDA-Public Use
  Company Number: US-ABBOTT-11P-163-0847341-00

PATIENT
  Sex: Male
  Weight: 86.26 kg

DRUGS (1)
  1. HUMIRA [Suspect]
     Indication: RHEUMATOID ARTHRITIS
     Dosage: 1 IN 2 WEEKS:PARTICIPATED CLINICAL TRIAL
     Route: 058
     Dates: start: 20000101, end: 20100101

REACTIONS (4)
  - PAIN [None]
  - RHEUMATOID ARTHRITIS [None]
  - OROPHARYNGEAL PAIN [None]
  - INFLUENZA LIKE ILLNESS [None]
